FAERS Safety Report 24185941 (Version 1)
Quarter: 2024Q3

REPORT INFORMATION
  Report Type: Report from Study
  Country: US (occurrence: US)
  Receive Date: 20240807
  Receipt Date: 20240807
  Transmission Date: 20241017
  Serious: Yes (Other)
  Sender: TAKEDA
  Company Number: US-TAKEDA-2024TUS078412

PATIENT
  Sex: Female

DRUGS (1)
  1. LANADELUMAB [Suspect]
     Active Substance: LANADELUMAB
     Indication: Product used for unknown indication
     Dosage: UNK UNK, Q2WEEKS
     Route: 058

REACTIONS (2)
  - Arthropathy [Recovering/Resolving]
  - Hepatic enzyme increased [Recovering/Resolving]
